FAERS Safety Report 14032881 (Version 1)
Quarter: 2017Q4

REPORT INFORMATION
  Report Type: Spontaneous
  Country: CL (occurrence: CL)
  Receive Date: 20171003
  Receipt Date: 20171003
  Transmission Date: 20180321
  Serious: Yes (Other)
  Sender: FDA-Public Use
  Company Number: CL-JNJFOC-20170205774

PATIENT
  Age: 90 Year
  Sex: Male

DRUGS (1)
  1. XARELTO [Suspect]
     Active Substance: RIVAROXABAN
     Indication: ATRIAL FIBRILLATION
     Route: 048

REACTIONS (4)
  - Haematuria [Unknown]
  - Malignant neoplasm of pleura [Not Recovered/Not Resolved]
  - Haemorrhage [Unknown]
  - Tumour haemorrhage [Not Recovered/Not Resolved]
